FAERS Safety Report 13541090 (Version 1)
Quarter: 2017Q2

REPORT INFORMATION
  Report Type: Report from Study
  Country: CA (occurrence: CA)
  Receive Date: 20170512
  Receipt Date: 20170512
  Transmission Date: 20170830
  Serious: Yes (Other)
  Sender: FDA-Public Use
  Company Number: CA-GILEAD-2017-0271613

PATIENT
  Age: 83 Year
  Sex: Male

DRUGS (2)
  1. IBAVYR [Concomitant]
     Active Substance: RIBAVIRIN
     Indication: CHRONIC HEPATITIS C
  2. SOFOSBUVIR [Suspect]
     Active Substance: SOFOSBUVIR
     Indication: CHRONIC HEPATITIS C
     Dosage: 400 MG, UNK
     Route: 048
     Dates: start: 20170203

REACTIONS (5)
  - Drug dose omission [Unknown]
  - Feeling abnormal [Unknown]
  - Confusional state [Unknown]
  - Neoplasm malignant [Unknown]
  - Disorientation [Unknown]
